FAERS Safety Report 21735766 (Version 3)
Quarter: 2023Q1

REPORT INFORMATION
  Report Type: Report from Study
  Country: BE (occurrence: BE)
  Receive Date: 20221215
  Receipt Date: 20230105
  Transmission Date: 20230417
  Serious: Yes (Hospitalization, Other)
  Sender: FDA-Public Use
  Company Number: BE-CELLTRION HEALTHCARE HUNGARY KFT-2021BE015949

PATIENT
  Age: 86 Year
  Sex: Female
  Weight: 50.8 kg

DRUGS (25)
  1. LENALIDOMIDE [Suspect]
     Active Substance: LENALIDOMIDE
     Indication: Follicular lymphoma
     Dosage: DAYS 1 TO 21 OF EVERY 28-DAY CYCLE FOR 12 CYCLES
     Route: 048
     Dates: start: 20211022, end: 20211105
  2. LENALIDOMIDE [Suspect]
     Active Substance: LENALIDOMIDE
     Indication: Splenic marginal zone lymphoma stage IV
     Dosage: 420 MG EVERY 28 DAY (20MILLIGRAM)
     Route: 048
     Dates: start: 20211022
  3. LENALIDOMIDE [Suspect]
     Active Substance: LENALIDOMIDE
     Dosage: 20 MG EVERY 28 DAY (20MILLIGRAM)
     Route: 065
     Dates: start: 20211022
  4. LENALIDOMIDE [Suspect]
     Active Substance: LENALIDOMIDE
     Dosage: 20 MILLIGRAM(DAYS 1 TO 21 OF EVERY 28-DAY CYCLE FOR 12 CYCLES)
     Route: 048
     Dates: start: 20211022, end: 20211105
  5. LENALIDOMIDE [Suspect]
     Active Substance: LENALIDOMIDE
     Dosage: 20 MILLIGRAM, QD ON DAYS 1-21 OF EACH 28DAY CYCLE
     Route: 048
     Dates: start: 20211105
  6. LENALIDOMIDE [Suspect]
     Active Substance: LENALIDOMIDE
     Dosage: 20 MG QD ON DAYS 1-21 OF EACH 28DAY CYCLE
     Route: 048
     Dates: start: 20211110
  7. LENALIDOMIDE [Suspect]
     Active Substance: LENALIDOMIDE
     Dosage: 20 MG, QD ON DAYS 1-21 OF EACH 28-DAY CYCLE
     Route: 048
     Dates: start: 20211111
  8. LENALIDOMIDE [Suspect]
     Active Substance: LENALIDOMIDE
     Dosage: 20 MG QD ON DAYS 1-21 OF EACH 28-DAY CYCLE
     Route: 048
     Dates: start: 20211125
  9. TAFASITAMAB [Suspect]
     Active Substance: TAFASITAMAB
     Indication: Follicular lymphoma
     Dosage: UNK, BLINDED, INFORMATION WITHHELD
     Route: 042
     Dates: start: 20211022
  10. TAFASITAMAB [Suspect]
     Active Substance: TAFASITAMAB
     Dosage: BLINDED INFORMATION WITH HELD
     Route: 042
     Dates: start: 20211105
  11. TAFASITAMAB [Suspect]
     Active Substance: TAFASITAMAB
     Dosage: BLINDED INFORMATION WITH HELD
     Route: 042
     Dates: start: 20211118
  12. TAFASITAMAB [Suspect]
     Active Substance: TAFASITAMAB
     Dosage: BLINDED INFORMATION WITH HELD
     Route: 042
     Dates: start: 20211125
  13. RITUXIMAB [Suspect]
     Active Substance: RITUXIMAB
     Indication: Follicular lymphoma
     Dosage: 375 MILLIGRAM/SQ. METER, 375 MG/M2 (550.11)
     Route: 042
     Dates: start: 20211022
  14. RITUXIMAB [Suspect]
     Active Substance: RITUXIMAB
     Indication: Splenic marginal zone lymphoma stage IV
     Dosage: 375 MILLIGRAM/SQ. METER
     Route: 065
     Dates: start: 20211022
  15. RITUXIMAB [Suspect]
     Active Substance: RITUXIMAB
     Dosage: DAYS 1, 8, 15 AND 22 IN CYCLE 1, DAY 1 OF EVERY
     Route: 042
     Dates: start: 20211022, end: 20211105
  16. RITUXIMAB [Suspect]
     Active Substance: RITUXIMAB
     Dosage: DAYS 1, 8, 15, 22 IN CYCLE 1, DAY 1 OF EVERY
     Route: 042
     Dates: start: 20211022, end: 20211105
  17. RITUXIMAB [Suspect]
     Active Substance: RITUXIMAB
     Dosage: DOSES PRIOR TO THE SERIOUS ADVERSE EVENT
     Route: 042
     Dates: start: 20211105
  18. RITUXIMAB [Suspect]
     Active Substance: RITUXIMAB
     Dosage: PRIOR TO THE SAE OF FEVER (SECOND OCCURRENCE)
     Route: 042
     Dates: start: 20211118
  19. RITUXIMAB [Suspect]
     Active Substance: RITUXIMAB
     Dosage: 375 MILLIGRAM/SQ. METER
     Route: 042
     Dates: start: 20211118
  20. TAFASITAMAB-CXIX [Suspect]
     Active Substance: TAFASITAMAB-CXIX
     Indication: Follicular lymphoma
     Dosage: 600 MILLIGRAM
     Route: 042
     Dates: start: 20211022
  21. TAFASITAMAB-CXIX [Suspect]
     Active Substance: TAFASITAMAB-CXIX
     Dosage: DAYS 1, 8, 15, 22 OF CYCLES 1-3, DAYS 1
     Route: 042
     Dates: start: 20211022, end: 20211105
  22. TAFASITAMAB-CXIX [Suspect]
     Active Substance: TAFASITAMAB-CXIX
     Dosage: 600 MILLIGRAM
     Route: 042
     Dates: start: 20211118
  23. TAFASITAMAB-CXIX [Suspect]
     Active Substance: TAFASITAMAB-CXIX
     Dosage: 600 MILLIGRAM
     Route: 042
     Dates: start: 20211125
  24. TAFASITAMAB-CXIX [Suspect]
     Active Substance: TAFASITAMAB-CXIX
     Indication: Splenic marginal zone lymphoma
     Dosage: DAYS1, 8, 15 AND 22 OF CYCLES 1 TO 3, DAYS 1, 15
     Route: 048
     Dates: start: 20211022
  25. LENALIDOMIDE [Suspect]
     Active Substance: LENALIDOMIDE
     Indication: Splenic marginal zone lymphoma
     Dosage: PATIENT RECEIVED DOSE ON DAYS 1 TO 21 OF EVERY 28D
     Route: 042
     Dates: start: 20211022

REACTIONS (8)
  - Condition aggravated [Recovered/Resolved]
  - Pleural effusion [Recovered/Resolved]
  - Chills [Unknown]
  - Pyrexia [Recovered/Resolved]
  - Gastroenteritis [Recovered/Resolved]
  - Cough [Recovered/Resolved]
  - Blastocystis infection [Recovered/Resolved]
  - Pneumonia [Recovered/Resolved]

NARRATIVE: CASE EVENT DATE: 20211106
